FAERS Safety Report 6343013-5 (Version None)
Quarter: 2009Q3

REPORT INFORMATION
  Report Type: 
  Country: None (occurrence: None)
  Receive Date: 20090908
  Receipt Date: 20070316
  Transmission Date: 20100115
  Serious: Yes (Other)
  Sender: FDA-Public Use
  Company Number: US-ASTRAZENECA-2006UW27861

PATIENT
  Age: 449 Month
  Sex: Female
  Weight: 142.3 kg

DRUGS (14)
  1. SEROQUEL [Suspect]
     Indication: BIPOLAR DISORDER
     Route: 048
     Dates: start: 20000101
  2. SEROQUEL [Suspect]
     Dosage: 200-600MG
     Route: 048
     Dates: start: 20040726
  3. GEODON [Concomitant]
     Dates: start: 20000101
  4. PAXIL [Concomitant]
     Dates: start: 19960101
  5. PAXIL [Concomitant]
  6. AMBIEN [Concomitant]
     Indication: INSOMNIA
     Dosage: AS PER NEEDED
     Route: 048
     Dates: start: 20040726
  7. DESYREL [Concomitant]
     Dates: start: 19970101
  8. FUROSEMIDE [Concomitant]
     Route: 048
     Dates: start: 20050225
  9. RISPERDAL [Concomitant]
     Route: 048
     Dates: start: 20050106
  10. PHENTERMINE HYDROCHLORIDE [Concomitant]
     Indication: WEIGHT DECREASED
     Dates: start: 20050108
  11. HYDROCODONE BITARTRATE + ACETAMINOPHEN [Concomitant]
     Dosage: STRENGTH 10/500
     Dates: start: 20020206
  12. ABILIFY [Concomitant]
     Dates: start: 20070307
  13. LEXAPRO [Concomitant]
     Dates: start: 20070307
  14. LAMICTAL [Concomitant]
     Dates: start: 20070307

REACTIONS (3)
  - DIABETES MELLITUS [None]
  - HEAD INJURY [None]
  - SUICIDE ATTEMPT [None]
